FAERS Safety Report 9966470 (Version 1)
Quarter: 2014Q1

REPORT INFORMATION
  Report Type: Report from Study
  Country: US (occurrence: US)
  Receive Date: 20140305
  Receipt Date: 20140305
  Transmission Date: 20141002
  Serious: No
  Sender: FDA-Public Use
  Company Number: US-ABBVIE-13P-163-1120497-00

PATIENT
  Age: 53 Year
  Sex: Female

DRUGS (1)
  1. HUMIRA [Suspect]
     Indication: RHEUMATOID ARTHRITIS
     Route: 058
     Dates: start: 20130627

REACTIONS (4)
  - Weight decreased [Recovered/Resolved]
  - Injection site bruising [Recovered/Resolved]
  - Alopecia [Recovered/Resolved]
  - Rash [Recovered/Resolved]
